FAERS Safety Report 12634968 (Version 1)
Quarter: 2016Q3

REPORT INFORMATION
  Report Type: Spontaneous
  Country: US (occurrence: US)
  Receive Date: 20160808
  Receipt Date: 20160808
  Transmission Date: 20161109
  Serious: No
  Sender: FDA-Public Use
  Company Number: US-PRESTIUM-2016RN000050

PATIENT
  Age: 45 Year
  Sex: Male

DRUGS (1)
  1. EXTINA [Suspect]
     Active Substance: KETOCONAZOLE
     Indication: PRODUCT USED FOR UNKNOWN INDICATION
     Dosage: 50 G PACKAGE SIZE, PEA SIZED FOAM TO CHIN, QD
     Route: 061
     Dates: start: 201502, end: 20160131

REACTIONS (3)
  - Expired product administered [Recovered/Resolved]
  - Skin burning sensation [Recovered/Resolved]
  - Erythema [Recovered/Resolved]

NARRATIVE: CASE EVENT DATE: 20160131
